FAERS Safety Report 9205205 (Version 4)
Quarter: 2013Q2

REPORT INFORMATION
  Report Type: Spontaneous
  Country: GB (occurrence: GB)
  Receive Date: 20130402
  Receipt Date: 20130619
  Transmission Date: 20140414
  Serious: Yes (Other)
  Sender: FDA-Public Use
  Company Number: PHFR2012GB006234

PATIENT
  Age: 59 Year
  Sex: Male

DRUGS (6)
  1. CLOZARIL [Suspect]
     Indication: SCHIZOPHRENIA
     Dosage: 450 MG NOCTE
     Route: 048
     Dates: start: 20010701, end: 201211
  2. CLOZARIL [Interacting]
     Indication: SCHIZOPHRENIA
     Dosage: 350 MG
  3. CLOZARIL [Interacting]
     Dosage: 250 MG, QD
     Route: 048
     Dates: start: 201303
  4. PAROXETINE SANDOZ [Interacting]
     Dosage: 50 MG, QD
  5. PAROXETINE SANDOZ [Interacting]
     Dosage: 20 MG, QD
  6. PAROXETINE SANDOZ [Interacting]
     Dosage: DOSE REDUCED

REACTIONS (4)
  - Antipsychotic drug level increased [Recovering/Resolving]
  - Drug interaction [Unknown]
  - Gamma-glutamyltransferase increased [Unknown]
  - Sedation [Unknown]
